FAERS Safety Report 18556507 (Version 1)
Quarter: 2020Q4

REPORT INFORMATION
  Report Type: Report from Study
  Country: FR (occurrence: DE)
  Receive Date: 20201128
  Receipt Date: 20201128
  Transmission Date: 20210114
  Serious: Yes (Other)
  Sender: FDA-Public Use
  Company Number: FR-ACCORD-209462

PATIENT
  Age: 55 Year
  Sex: Female

DRUGS (3)
  1. EPIRUBICIN [Suspect]
     Active Substance: EPIRUBICIN
     Indication: BREAST CANCER
  2. PACLITAXEL/PACLITAXEL LIPOSOME [Suspect]
     Active Substance: PACLITAXEL
     Indication: BREAST CANCER
  3. EPOETIN ALFA/EPOETIN BETA/EPOETIN DELTA/EPOETIN ZETA/ERYTHROPOIETIN HUMAN [Concomitant]
     Active Substance: ERYTHROPOIETIN

REACTIONS (2)
  - Polyserositis [Unknown]
  - Aortitis [Unknown]
